FAERS Safety Report 8474552-9 (Version None)
Quarter: 2012Q2

REPORT INFORMATION
  Report Type: 
  Country: None (occurrence: None)
  Receive Date: 20120628
  Receipt Date: 20120620
  Transmission Date: 20120825
  Serious: Yes (Hospitalization, Other)
  Sender: FDA-Public Use
  Company Number: US-BAYER-2012-062405

PATIENT
  Age: 35 Year
  Sex: Female
  Weight: 82.993 kg

DRUGS (35)
  1. LIDODERM [Concomitant]
     Dosage: 5 %, QD
  2. SKELAXIN [Concomitant]
     Dosage: 800 MG, TID
     Route: 048
  3. INVANZ [Concomitant]
     Route: 042
  4. ZYRTEC [Concomitant]
     Dosage: 10 MG, EVERY DAY
     Route: 048
     Dates: end: 20070921
  5. ZANAFLEX [Concomitant]
     Dosage: 4 MG, QHS
     Route: 048
  6. WELLBUTRIN SR [Concomitant]
     Dosage: 200 MG, TWO TABLETS DAILY
     Route: 048
  7. TOPAMAX [Concomitant]
     Dosage: 200 MG, TWO TABLETS DAILY
     Route: 048
  8. PHENERGAN HCL [Concomitant]
     Dosage: 25 MG, Q 4-6 HOURS PRN
     Route: 048
  9. PHENERGAN HCL [Concomitant]
     Dosage: 25 MG, Q 12 HOURS PRN
  10. COMPAZINE [Concomitant]
     Dosage: 10 MG, TID
     Route: 048
  11. OXYCODONE HCL AND ACETAMINOPHEN [Concomitant]
     Dosage: 5-325 MG TAKE 1-2 Q 4 HOURS PRN
     Route: 048
  12. HYDROCODONE BITARTRATE + ACETAMINOPHEN [Concomitant]
     Dosage: 10-325 MG, TID
     Route: 048
  13. LISINOPRIL AND HYDROCHLOROTHIAZIDE [Concomitant]
     Dosage: 20-25 MG EVERY DAY
     Route: 048
  14. TEMAZEPAM [Concomitant]
     Dosage: 15 MG, HS
     Route: 048
  15. DIAZEPAM [Concomitant]
     Dosage: 5 MG, 1-2 TID PRN
     Route: 048
  16. INDERAL LA [Concomitant]
     Dosage: 120 MG, EVERY DAY
     Route: 048
     Dates: end: 20070921
  17. TRAZODONE HCL [Concomitant]
     Dosage: 50 MG, EVERY BEDTIME
     Route: 048
  18. ZOFRAN [Concomitant]
     Dosage: 8 MG, TID
     Route: 048
  19. FLOMAX [Concomitant]
     Indication: MICTURITION DISORDER
     Dosage: 0.4 MG, DAILY
     Route: 048
  20. LYRICA [Concomitant]
  21. ALDACTONE [Concomitant]
     Indication: ACNE
     Dosage: 100 MG, EVERY DAY
     Route: 048
     Dates: end: 20070921
  22. HYOSCYAMINE SULFATE CR [Concomitant]
     Dosage: 0.375 MG, BID
     Route: 048
  23. CELEBREX [Concomitant]
     Dosage: 200 MG, BID
     Route: 048
  24. ALLEGRA-D 12 HOUR [Concomitant]
     Dosage: 180-240 MG EVERY DAY
     Route: 048
  25. ALLEGRA [Concomitant]
     Dosage: 180 MG, EVERY DAY
     Route: 048
     Dates: end: 20080401
  26. MINOCYCLINE HCL [Concomitant]
     Dosage: 100 MG, BID
     Route: 048
  27. CELECOXIB [Concomitant]
     Dosage: 200 MG, BID
     Route: 048
  28. DIFLUCAN [Concomitant]
     Dosage: 150 MG, TAKE ONE TODAY THEN REPEAT IN THREE DAYS
     Route: 048
  29. SOMA [Concomitant]
     Dosage: 350 MG, TID PRN
     Route: 048
  30. PROPOXYPHENE-N WITH APAP [Concomitant]
     Dosage: 100-650 MG
     Route: 048
  31. ATIVAN [Concomitant]
     Dosage: 2 MG, TID
     Route: 048
  32. DEXAMETHASONE [Concomitant]
     Dosage: 2 MG, TAPER
     Route: 048
  33. YAZ [Suspect]
     Indication: PREMENSTRUAL SYNDROME
  34. ZANAFLEX [Concomitant]
     Dosage: 8 MG, QHS
     Route: 048
  35. PROTONIX [Concomitant]
     Dosage: 40 MG, BID
     Route: 048

REACTIONS (3)
  - JUGULAR VEIN THROMBOSIS [None]
  - SUBCLAVIAN VEIN THROMBOSIS [None]
  - CHOLECYSTITIS CHRONIC [None]
